FAERS Safety Report 10455498 (Version 12)
Quarter: 2015Q4

REPORT INFORMATION
  Report Type: Report from Study
  Country: BR (occurrence: BR)
  Receive Date: 20140916
  Receipt Date: 20151118
  Transmission Date: 20160304
  Serious: Yes (Hospitalization, Other)
  Sender: FDA-Public Use
  Company Number: BR-ROCHE-1448563

PATIENT
  Age: 46 Year
  Sex: Female
  Weight: 59 kg

DRUGS (7)
  1. NIMESULIDA [Concomitant]
     Active Substance: NIMESULIDE
  2. PACO [Concomitant]
     Active Substance: ACETAMINOPHEN\CODEINE PHOSPHATE
  3. ACTEMRA [Suspect]
     Active Substance: TOCILIZUMAB
     Indication: RHEUMATOID ARTHRITIS
     Route: 042
  4. MABTHERA [Suspect]
     Active Substance: RITUXIMAB
     Indication: RHEUMATOID ARTHRITIS
     Route: 042
     Dates: start: 20131217, end: 20140212
  5. OMEGA 3 [Concomitant]
     Active Substance: OMEGA-3 FATTY ACIDS
     Dosage: FISH OIL
     Route: 065
  6. COMBIGAN [Concomitant]
     Active Substance: BRIMONIDINE TARTRATE\TIMOLOL MALEATE
     Route: 047
  7. PRELONE [Concomitant]
     Active Substance: PREDNISOLONE

REACTIONS (16)
  - Eye allergy [Not Recovered/Not Resolved]
  - Glaucoma [Not Recovered/Not Resolved]
  - Dry eye [Not Recovered/Not Resolved]
  - Eye inflammation [Not Recovered/Not Resolved]
  - Eye oedema [Unknown]
  - Dry eye [Unknown]
  - Visual acuity reduced [Not Recovered/Not Resolved]
  - Arthralgia [Not Recovered/Not Resolved]
  - Eye disorder [Not Recovered/Not Resolved]
  - Carpal tunnel syndrome [Unknown]
  - Eye haemorrhage [Unknown]
  - Cataract [Not Recovered/Not Resolved]
  - Macular hole [Not Recovered/Not Resolved]
  - Migraine [Not Recovered/Not Resolved]
  - Osteopenia [Unknown]
  - Eye disorder [Unknown]

NARRATIVE: CASE EVENT DATE: 201403
